FAERS Safety Report 23337959 (Version 1)
Quarter: 2023Q4

REPORT INFORMATION
  Report Type: Spontaneous
  Country: US (occurrence: US)
  Receive Date: 20231226
  Receipt Date: 20231226
  Transmission Date: 20240110
  Serious: No
  Sender: FDA-Public Use
  Company Number: US-GLENMARK PHARMACEUTICALS-2023GMK085342

PATIENT

DRUGS (3)
  1. TERIFLUNOMIDE [Suspect]
     Active Substance: TERIFLUNOMIDE
     Indication: Multiple sclerosis
     Dosage: 1 DOSAGE FORM, AM (ONE TABLET A DAY)
     Route: 048
     Dates: start: 20230904
  2. CHOLECALCIFEROL [Concomitant]
     Active Substance: CHOLECALCIFEROL
     Indication: Product used for unknown indication
     Dosage: UNK
     Route: 065
  3. BIFIDOBACTERIUM SPP.\LACTOBACILLUS ACIDOPHILUS [Concomitant]
     Active Substance: BIFIDOBACTERIUM SPP.\LACTOBACILLUS ACIDOPHILUS
     Indication: Product used for unknown indication
     Dosage: UNK
     Route: 065

REACTIONS (5)
  - Eructation [Unknown]
  - Hiccups [Unknown]
  - Constipation [Unknown]
  - Change of bowel habit [Unknown]
  - Product substitution issue [Unknown]
